FAERS Safety Report 25554871 (Version 1)
Quarter: 2025Q3

REPORT INFORMATION
  Report Type: Spontaneous
  Country: US (occurrence: US)
  Receive Date: 20250715
  Receipt Date: 20250715
  Transmission Date: 20251020
  Serious: No
  Sender: BAYER HEALTHCARE PHARMACEUTICALS INC.
  Company Number: US-BAYER-2025A091064

PATIENT
  Age: 63 Year
  Sex: Male

DRUGS (1)
  1. JIVI [Suspect]
     Active Substance: DAMOCTOCOG ALFA PEGOL
     Indication: Haemorrhage
     Dosage: JIVI 2096 UNITS~INFUSE: 4000 UNITS (+/-10%) ONCE A WEEK FOR PROPHYLAXIS
     Route: 042

REACTIONS (3)
  - Product dose omission issue [None]
  - Mass [None]
  - Contusion [None]

NARRATIVE: CASE EVENT DATE: 20250708
